FAERS Safety Report 4991185-7 (Version None)
Quarter: 2006Q2

REPORT INFORMATION
  Report Type: 
  Country: None (occurrence: None)
  Receive Date: 20060427
  Receipt Date: 20060410
  Transmission Date: 20061013
  Serious: Yes (Disabling)
  Sender: FDA-Public Use
  Company Number: 224341

PATIENT
  Age: 58 Year
  Sex: Female

DRUGS (2)
  1. HERCEPTIN [Suspect]
     Indication: BREAST CANCER
     Dates: start: 20041115
  2. DOCETAXEL (DOCETAXEL) [Concomitant]

REACTIONS (3)
  - NEUROTOXICITY [None]
  - OPTIC NERVE DISORDER [None]
  - VISUAL ACUITY REDUCED [None]
